FAERS Safety Report 22912562 (Version 3)
Quarter: 2023Q4

REPORT INFORMATION
  Report Type: Spontaneous
  Country: BR (occurrence: None)
  Receive Date: 20230906
  Receipt Date: 20231012
  Transmission Date: 20240110
  Serious: Yes (Other)
  Sender: FDA-Public Use
  Company Number: 2023A198800

PATIENT
  Age: 11888 Day
  Sex: Female

DRUGS (3)
  1. FASENRA [Suspect]
     Active Substance: BENRALIZUMAB
     Indication: Asthma
     Dosage: 300MG/ML EVERY FOUR WEEKS
     Route: 058
     Dates: start: 20230815
  2. ALENIA [Concomitant]
     Dosage: 12/400
  3. GESTRINONE [Concomitant]
     Active Substance: GESTRINONE

REACTIONS (1)
  - Pleural effusion [Recovering/Resolving]

NARRATIVE: CASE EVENT DATE: 20230821
